FAERS Safety Report 6422188-3 (Version None)
Quarter: 2009Q4

REPORT INFORMATION
  Report Type: 
  Country: None (occurrence: None)
  Receive Date: 20091030
  Receipt Date: 20091023
  Transmission Date: 20100525
  Serious: No
  Sender: FDA-Public Use
  Company Number: PHHY2009CA45264

PATIENT
  Sex: Female

DRUGS (2)
  1. ACLASTA [Suspect]
     Indication: OSTEOPOROSIS
     Dosage: 5 MG, UNK
     Route: 042
     Dates: start: 20091008
  2. ACLASTA [Suspect]
     Dosage: 5 MG, UNK
     Dates: start: 20091015

REACTIONS (7)
  - BLOOD PRESSURE INCREASED [None]
  - CHEST DISCOMFORT [None]
  - DYSPNOEA [None]
  - HEAD DISCOMFORT [None]
  - HEART RATE INCREASED [None]
  - TENSION [None]
  - THROAT TIGHTNESS [None]
